FAERS Safety Report 20746607 (Version 5)
Quarter: 2022Q4

REPORT INFORMATION
  Report Type: Report from Study
  Country: US (occurrence: US)
  Receive Date: 20220425
  Receipt Date: 20221011
  Transmission Date: 20230112
  Serious: Yes (Other)
  Sender: FDA-Public Use
  Company Number: US-ORGANON-O2204USA001656

PATIENT
  Age: 27 Year
  Sex: Female
  Weight: 158.73 kg

DRUGS (3)
  1. IMPLANON [Suspect]
     Active Substance: ETONOGESTREL
     Dosage: 1 IMPLANT (68 MG) IN LEFT UPPER ARM
     Route: 059
     Dates: start: 20200708
  2. NEXPLANON [Concomitant]
     Active Substance: ETONOGESTREL
     Dosage: UNK
     Route: 059
     Dates: start: 20170709, end: 20200708
  3. SLYND [Concomitant]
     Active Substance: DROSPIRENONE
     Indication: Oral contraception
     Dosage: UNK

REACTIONS (2)
  - Device dislocation [Not Recovered/Not Resolved]
  - Device breakage [Not Recovered/Not Resolved]

NARRATIVE: CASE EVENT DATE: 20220420
